FAERS Safety Report 6940256-4 (Version None)
Quarter: 2010Q3

REPORT INFORMATION
  Report Type: 
  Country: None (occurrence: None)
  Receive Date: 20100825
  Receipt Date: 20100816
  Transmission Date: 20110219
  Serious: Yes (Hospitalization)
  Sender: FDA-Public Use
  Company Number: NL-MILLENNIUM PHARMACEUTICALS, INC.-2010-03344

PATIENT

DRUGS (18)
  1. VELCADE [Suspect]
     Indication: MULTIPLE MYELOMA
     Dosage: 1.7 MG, CYCLIC
     Route: 042
     Dates: start: 20090206, end: 20090309
  2. PRIMPERAN                          /00041901/ [Concomitant]
     Indication: PROPHYLAXIS OF NAUSEA AND VOMITING
     Dosage: 10 MG, PRN
     Route: 048
     Dates: start: 20090206, end: 20090309
  3. PARACETAMOL [Concomitant]
     Indication: BONE PAIN
     Dosage: 4000 MG, UNK
     Route: 048
  4. MORPHINE [Concomitant]
     Indication: BONE PAIN
     Route: 042
  5. FOLIC ACID [Concomitant]
     Indication: ANAEMIA
     Dosage: 5 MG, UNK
     Route: 048
  6. PANTOZOL                           /01263202/ [Concomitant]
     Indication: PROPHYLAXIS AGAINST GASTROINTESTINAL ULCER
     Dosage: 80 MG, UNK
     Route: 048
  7. MAGNESIUM OXIDE [Concomitant]
     Indication: CONSTIPATION PROPHYLAXIS
     Dosage: 3000 MG, UNK
     Route: 048
     Dates: end: 20090323
  8. FLOXAPEN                           /00239101/ [Concomitant]
     Dosage: 1500 MG, UNK
     Route: 048
     Dates: start: 20090219, end: 20090226
  9. ASCAL                              /00002702/ [Concomitant]
     Indication: BONE PAIN
     Route: 048
  10. APD [Concomitant]
     Indication: BONE LESION
     Dosage: 90 MG, UNK
     Route: 042
     Dates: start: 20090206, end: 20090206
  11. ONDANSETRON [Concomitant]
     Indication: PROPHYLAXIS OF NAUSEA AND VOMITING
     Dosage: UNK
     Route: 042
     Dates: start: 20090206, end: 20090309
  12. ZELITREX                           /01269701/ [Concomitant]
     Indication: ANTIVIRAL PROPHYLAXIS
     Dosage: 1000 MG, UNK
     Dates: start: 20090206, end: 20090309
  13. RED BLOOD CELLS [Concomitant]
     Dosage: 4 UNK, UNK
     Route: 042
     Dates: start: 20090310
  14. ZINACEF                            /00454601/ [Concomitant]
     Dosage: 4500 MG, UNK
     Route: 042
     Dates: start: 20090312, end: 20090316
  15. TOBRAMYCIN [Concomitant]
     Dosage: 280 MG, UNK
     Route: 042
     Dates: start: 20090312, end: 20090313
  16. KLACID                             /00984601/ [Concomitant]
     Dosage: 500 MG, UNK
     Route: 048
     Dates: start: 20090316, end: 20090319
  17. MOVICOLON [Concomitant]
     Indication: CONSTIPATION
     Route: 048
  18. METOCLOPRAMIDE [Concomitant]
     Indication: PROPHYLAXIS
     Dosage: UNK
     Route: 048

REACTIONS (3)
  - DEHYDRATION [None]
  - ERYSIPELAS [None]
  - PNEUMONIA [None]
